FAERS Safety Report 18817112 (Version 2)
Quarter: 2021Q1

REPORT INFORMATION
  Report Type: Spontaneous
  Country: JP (occurrence: JP)
  Receive Date: 20210201
  Receipt Date: 20210218
  Transmission Date: 20210419
  Serious: No
  Sender: FDA-Public Use
  Company Number: JP-UCBSA-2021003462

PATIENT
  Age: 20 Year
  Sex: Male
  Weight: 36.8 kg

DRUGS (23)
  1. E KEPPRA [Suspect]
     Active Substance: LEVETIRACETAM
     Indication: EPILEPSY
     Dosage: 2500 MILLIGRAM, DAILY
     Dates: start: 20200730
  2. GABALON INTRATHECAL [Concomitant]
     Active Substance: BACLOFEN
     Dosage: 130 MICROGRAM, DAILY
     Route: 024
     Dates: start: 20201026, end: 20201028
  3. GABALON INTRATHECAL [Concomitant]
     Active Substance: BACLOFEN
     Dosage: 155 MICROGRAM, DAILY
     Route: 024
     Dates: start: 20201102, end: 20201108
  4. VIMPAT [Suspect]
     Active Substance: LACOSAMIDE
     Indication: EPILEPSY
     Dosage: 100 MILLIGRAM, 2X/DAY (BID)
     Dates: end: 20201229
  5. VIMPAT [Suspect]
     Active Substance: LACOSAMIDE
     Indication: OFF LABEL USE
  6. GABALON INTRATHECAL [Concomitant]
     Active Substance: BACLOFEN
     Indication: PRODUCT USED FOR UNKNOWN INDICATION
     Dosage: 120 MICROGRAM, DAILY
     Route: 024
  7. GABAPEN [Concomitant]
     Active Substance: GABAPENTIN
     Dosage: 800 MILLIGRAM, DAILY
     Route: 048
     Dates: start: 20200813, end: 20200923
  8. GABAPEN [Concomitant]
     Active Substance: GABAPENTIN
     Dosage: 2000 MILLIGRAM, DAILY
     Route: 048
     Dates: start: 20201123, end: 20201214
  9. GABALON INTRATHECAL [Concomitant]
     Active Substance: BACLOFEN
     Dosage: 180 MICROGRAM, DAILY
     Route: 024
     Dates: start: 20201201
  10. GABAPEN [Concomitant]
     Active Substance: GABAPENTIN
     Dosage: 2400 MILLIGRAM, DAILY
     Route: 048
     Dates: start: 20201215
  11. FYCOMPA [Concomitant]
     Active Substance: PERAMPANEL
     Indication: PRODUCT USED FOR UNKNOWN INDICATION
     Dosage: 4 MILLIGRAM, DAILY
     Route: 048
  12. GABAPEN [Concomitant]
     Active Substance: GABAPENTIN
     Dosage: 1200 MILLIGRAM, DAILY
     Route: 048
     Dates: start: 20200924, end: 20200925
  13. FYCOMPA [Concomitant]
     Active Substance: PERAMPANEL
     Dosage: 2 MILLIGRAM, DAILY
     Route: 048
  14. E KEPPRA [Suspect]
     Active Substance: LEVETIRACETAM
     Indication: OFF LABEL USE
     Dosage: 1500 MILLIGRAM, 2X/DAY (BID)
  15. GABALON INTRATHECAL [Concomitant]
     Active Substance: BACLOFEN
     Dosage: 186 MG, DAILY
     Route: 024
     Dates: start: 20201117, end: 20201124
  16. GABAPEN [Concomitant]
     Active Substance: GABAPENTIN
     Dosage: 400 MILLIGRAM, 4X/DAY (QID)
     Route: 048
     Dates: start: 20200926, end: 20201122
  17. E KEPPRA [Suspect]
     Active Substance: LEVETIRACETAM
     Indication: EPILEPSY
     Dosage: 2000 MILLIGRAM, DAILY
  18. GABALON INTRATHECAL [Concomitant]
     Active Substance: BACLOFEN
     Dosage: 140 MICROGRAM, DAILY
     Route: 024
     Dates: start: 20201029, end: 20201101
  19. GABALON INTRATHECAL [Concomitant]
     Active Substance: BACLOFEN
     Dosage: 200 MICROGRAM, DAILY
     Route: 024
     Dates: start: 20201124, end: 20201201
  20. VIMPAT [Suspect]
     Active Substance: LACOSAMIDE
     Indication: EPILEPSY
  21. GABALON INTRATHECAL [Concomitant]
     Active Substance: BACLOFEN
     Dosage: 170 MICROGRAM, DAILY
     Route: 024
     Dates: start: 20201109, end: 20201117
  22. GABAPEN [Concomitant]
     Active Substance: GABAPENTIN
     Indication: PRODUCT USED FOR UNKNOWN INDICATION
     Dosage: 400 MILLIGRAM, DAILY
     Route: 048
     Dates: end: 20200813
  23. FYCOMPA [Concomitant]
     Active Substance: PERAMPANEL
     Dosage: 4 MILLIGRAM, DAILY
     Route: 048
     Dates: start: 20200617

REACTIONS (2)
  - Drug ineffective [Unknown]
  - Off label use [Unknown]
